FAERS Safety Report 10237195 (Version 1)
Quarter: 2014Q1

REPORT INFORMATION
  Report Type: Spontaneous
  Country: US (occurrence: None)
  Receive Date: 20140306
  Receipt Date: 20140306
  Transmission Date: 20141002
  Serious: Yes (Other)
  Sender: FDA-Public Use
  Company Number: 163-21880-13103634

PATIENT
  Age: 68 Year
  Sex: Male

DRUGS (3)
  1. REVLIMID [Suspect]
     Indication: PLASMA CELL MYELOMA
     Dosage: 25 MG, 21 IN 28 D, PO?8/20/2013 - TEMOPRARILY INTERRUPTED
     Route: 048
     Dates: start: 20130820
  2. ASPIRIN (ACETYLSALICYLIC ACID) [Concomitant]
  3. MVI (MVI) [Concomitant]

REACTIONS (3)
  - Pulmonary oedema [None]
  - White blood cell count decreased [None]
  - Pruritus [None]
